FAERS Safety Report 5037312-7 (Version None)
Quarter: 2006Q2

REPORT INFORMATION
  Report Type: 
  Country: None (occurrence: None)
  Receive Date: 20060628
  Receipt Date: 20060523
  Transmission Date: 20061013
  Serious: Yes (Hospitalization, Disabling)
  Sender: FDA-Public Use
  Company Number: NL-AVENTIS-200615517GDDC

PATIENT
  Age: 51 Year
  Sex: Female
  Weight: 85 kg

DRUGS (1)
  1. TAXOTERE [Suspect]
     Indication: BREAST CANCER
     Route: 042
     Dates: start: 20060501, end: 20060501

REACTIONS (10)
  - BLISTER [None]
  - BURNING SENSATION [None]
  - ERYTHEMA [None]
  - GOUT [None]
  - INJECTION SITE EXTRAVASATION [None]
  - INJECTION SITE IRRITATION [None]
  - LEUKOPENIA [None]
  - MEDICATION ERROR [None]
  - SENSORY DISTURBANCE [None]
  - SKIN EXFOLIATION [None]
